FAERS Safety Report 5215222-X (Version None)
Quarter: 2006Q4

REPORT INFORMATION
  Report Type: 
  Country: None (occurrence: None)
  Receive Date: 20061120
  Receipt Date: 20060421
  Transmission Date: 20070319
  Serious: Yes (Other)
  Sender: FDA-Public Use
  Company Number: HQWYE970025APR06

PATIENT

DRUGS (1)
  1. ADVIL COLD AND SINUS [Suspect]
     Indication: SINUS DISORDER
     Dosage: 1 TABLET AS NEEDED, ORAL
     Route: 048
     Dates: start: 20061001

REACTIONS (1)
  - FEELING JITTERY [None]
